FAERS Safety Report 6386646-2 (Version None)
Quarter: 2009Q4

REPORT INFORMATION
  Report Type: 
  Country: None (occurrence: None)
  Receive Date: 20091002
  Receipt Date: 20090921
  Transmission Date: 20100525
  Serious: Yes (Death)
  Sender: FDA-Public Use
  Company Number: NZ-PFIZER INC-2009271405

PATIENT
  Age: 32 Year

DRUGS (1)
  1. ZELDOX [Suspect]

REACTIONS (1)
  - SUDDEN DEATH [None]
